FAERS Safety Report 8876347 (Version 3)
Quarter: 2013Q1

REPORT INFORMATION
  Report Type: Spontaneous
  Country: IT (occurrence: IT)
  Receive Date: 20121031
  Receipt Date: 20130228
  Transmission Date: 20140127
  Serious: Yes (Hospitalization, Other)
  Sender: FDA-Public Use
  Company Number: IT-BRISTOL-MYERS SQUIBB COMPANY-17056417

PATIENT
  Age: 83 Year
  Sex: Male

DRUGS (7)
  1. COUMADIN TABS 5 MG [Suspect]
     Indication: DEEP VEIN THROMBOSIS
     Dates: start: 20060101, end: 20121014
  2. TAMSULOSIN HCL [Concomitant]
     Route: 048
  3. METFORMINA [Concomitant]
     Route: 048
  4. POTASSIUM CHLORIDE [Concomitant]
     Dosage: KCL RETARD ^TAB 600MG^ 1 DOSE
     Route: 048
  5. LANOXIN [Concomitant]
     Dosage: LANOXIN ^TAB 0.125MG^ 1 DOSE/ORALLY;
     Route: 048
  6. NERIXIA [Concomitant]
     Dosage: ^25MG SOLUTION FOR INJECTION^ 1 DOSE
  7. COTAREG [Concomitant]
     Dosage: COTAREG ^TAB 160MG/12,5MG^
     Route: 048

REACTIONS (2)
  - Cerebral haemorrhage [Recovering/Resolving]
  - Fall [Recovering/Resolving]
